FAERS Safety Report 6655910-1 (Version None)
Quarter: 2010Q1

REPORT INFORMATION
  Report Type: 
  Country: None (occurrence: None)
  Receive Date: 20100329
  Receipt Date: 20100316
  Transmission Date: 20100710
  Serious: Yes (Hospitalization)
  Sender: FDA-Public Use
  Company Number: PHHY2010JP12870

PATIENT
  Age: 17 Year
  Sex: Female
  Weight: 52 kg

DRUGS (2)
  1. TEGRETOL [Suspect]
     Indication: CONVULSION
  2. DEPAKENE [Concomitant]
     Indication: CONVULSION

REACTIONS (10)
  - DRUG RASH WITH EOSINOPHILIA AND SYSTEMIC SYMPTOMS [None]
  - ERYTHEMA [None]
  - ERYTHEMA MULTIFORME [None]
  - HUMAN HERPESVIRUS 6 INFECTION [None]
  - LYMPH NODE PAIN [None]
  - LYMPHOCYTE STIMULATION TEST POSITIVE [None]
  - ORAL PAIN [None]
  - PURPURA [None]
  - PYREXIA [None]
  - STOMATITIS [None]
